FAERS Safety Report 5858120-0 (Version None)
Quarter: 2008Q3

REPORT INFORMATION
  Report Type: 
  Country: None (occurrence: None)
  Receive Date: 20080826
  Receipt Date: 20080816
  Transmission Date: 20090109
  Serious: Yes (Other)
  Sender: FDA-Public Use
  Company Number: CA-ELI_LILLY_AND_COMPANY-CA200808003543

PATIENT
  Age: 84 Year
  Sex: Female

DRUGS (7)
  1. FORTEO [Suspect]
     Indication: OSTEOPOROSIS
     Dosage: 20 UG, EACH MORNING
     Route: 058
     Dates: start: 20080812, end: 20080815
  2. ASPIRIN [Concomitant]
  3. VITAMIN D [Concomitant]
  4. NORVASC [Concomitant]
     Dosage: 5 MG, UNK
  5. RABEPRAZOLE SODIUM [Concomitant]
     Dosage: 20 MG, DAILY (1/D)
  6. VITALUX [Concomitant]
  7. LORAZEPAM [Concomitant]
     Dosage: 0.5 MG, UNK

REACTIONS (4)
  - ASTHENIA [None]
  - LIP SWELLING [None]
  - PHARYNGEAL OEDEMA [None]
  - THROAT TIGHTNESS [None]
